FAERS Safety Report 18235145 (Version 37)
Quarter: 2025Q3

REPORT INFORMATION
  Report Type: Report from Study
  Country: US (occurrence: US)
  Receive Date: 20200905
  Receipt Date: 20250929
  Transmission Date: 20251021
  Serious: Yes (Hospitalization, Other)
  Sender: TAKEDA
  Company Number: US-SHIRE-US202028646

PATIENT
  Age: 70 Year
  Sex: Female
  Weight: 124 kg

DRUGS (40)
  1. HUMAN IMMUNOGLOBULIN G [Suspect]
     Active Substance: HUMAN IMMUNOGLOBULIN G
     Indication: Immunodeficiency common variable
     Dosage: 20 GRAM, Q2WEEKS
  2. COVID-19 VACCINE NOS [Suspect]
     Active Substance: COVID-19 VACCINE
     Indication: COVID-19 immunisation
  3. DOXYCYCLINE [Suspect]
     Active Substance: DOXYCYCLINE
     Indication: Product used for unknown indication
  4. ACETAMINOPHEN [Concomitant]
     Active Substance: ACETAMINOPHEN
  5. CYMBALTA [Concomitant]
     Active Substance: DULOXETINE HYDROCHLORIDE
  6. METFORMIN HYDROCHLORIDE [Concomitant]
     Active Substance: METFORMIN HYDROCHLORIDE
  7. HUMALOG [Concomitant]
     Active Substance: INSULIN LISPRO
  8. VITAMIN B [Concomitant]
     Active Substance: VITAMIN B
  9. MIRAPEX [Concomitant]
     Active Substance: PRAMIPEXOLE DIHYDROCHLORIDE
  10. TRESIBA [Concomitant]
     Active Substance: INSULIN DEGLUDEC
  11. ALBUTEROL SULFATE [Concomitant]
     Active Substance: ALBUTEROL SULFATE
  12. LASIX [Concomitant]
     Active Substance: FUROSEMIDE
  13. ZANAFLEX [Concomitant]
     Active Substance: TIZANIDINE HYDROCHLORIDE
  14. SENNA PLUS [Concomitant]
     Active Substance: DOCUSATE SODIUM\SENNOSIDES\SENNOSIDES A AND B
  15. OLMESARTAN MEDOXOMIL [Concomitant]
     Active Substance: OLMESARTAN MEDOXOMIL
  16. DILTIAZEM [Concomitant]
     Active Substance: DILTIAZEM
  17. PROAIR HFA [Concomitant]
     Active Substance: ALBUTEROL SULFATE
  18. TRAMADOL HCL [Concomitant]
     Active Substance: TRAMADOL HYDROCHLORIDE
  19. FLUTICASONE PROPIONATE [Concomitant]
     Active Substance: FLUTICASONE PROPIONATE
  20. LIDOCAINE\PRILOCAINE [Concomitant]
     Active Substance: LIDOCAINE\PRILOCAINE
  21. IRON [Concomitant]
     Active Substance: IRON
  22. TRULICITY [Concomitant]
     Active Substance: DULAGLUTIDE
  23. EPINEPHRINE [Concomitant]
     Active Substance: EPINEPHRINE
  24. OXYGEN [Concomitant]
     Active Substance: OXYGEN
  25. PREDNISONE [Concomitant]
     Active Substance: PREDNISONE
  26. QVAR [Concomitant]
     Active Substance: BECLOMETHASONE DIPROPIONATE
  27. PRAVASTATIN SODIUM [Concomitant]
     Active Substance: PRAVASTATIN SODIUM
  28. SYMBICORT [Concomitant]
     Active Substance: BUDESONIDE\FORMOTEROL FUMARATE DIHYDRATE
  29. DEXILANT [Concomitant]
     Active Substance: DEXLANSOPRAZOLE
  30. EVAMIST [Concomitant]
     Active Substance: ESTRADIOL
  31. DIPHENHYDRAMINE [Concomitant]
     Active Substance: DIPHENHYDRAMINE
  32. VITAMIN B12 [Concomitant]
     Active Substance: CYANOCOBALAMIN
  33. PROAIR HFA [Concomitant]
     Active Substance: ALBUTEROL SULFATE
  34. TRAMADOL [Concomitant]
     Active Substance: TRAMADOL
  35. METFORMIN [Concomitant]
     Active Substance: METFORMIN HYDROCHLORIDE
  36. Lmx [Concomitant]
  37. FLUTICASONE [Concomitant]
     Active Substance: FLUTICASONE
  38. OLMESARTAN [Concomitant]
     Active Substance: OLMESARTAN
  39. PRAVASTATIN [Concomitant]
     Active Substance: PRAVASTATIN
  40. ALBUTEROL [Concomitant]
     Active Substance: ALBUTEROL

REACTIONS (47)
  - Vulvovaginal injury [Unknown]
  - Salmonellosis [Unknown]
  - Haemoglobin decreased [Unknown]
  - Breakthrough COVID-19 [Unknown]
  - Anal haemorrhage [Unknown]
  - Anorectal polyp [Unknown]
  - Gastric polyps [Unknown]
  - Anal fissure [Unknown]
  - Haemorrhoidal haemorrhage [Unknown]
  - Cellulitis [Unknown]
  - Kidney infection [Unknown]
  - Chronic obstructive pulmonary disease [Unknown]
  - Blood iron decreased [Unknown]
  - Hypervolaemia [Unknown]
  - Asthenia [Not Recovered/Not Resolved]
  - Malaise [Unknown]
  - Staphylococcal infection [Unknown]
  - Failed back surgery syndrome [Unknown]
  - Oxygen saturation abnormal [Unknown]
  - Tissue injury [Unknown]
  - Weight increased [Unknown]
  - Bacterial infection [Unknown]
  - Arthropathy [Unknown]
  - Fall [Unknown]
  - Urinary tract infection [Unknown]
  - Seasonal allergy [Unknown]
  - Pruritus genital [Unknown]
  - Sleep disorder [Unknown]
  - Drug hypersensitivity [Unknown]
  - Illness [Unknown]
  - Weight decreased [Unknown]
  - Dermatitis contact [Unknown]
  - Gastrointestinal infection [Unknown]
  - Product dose omission issue [Unknown]
  - Product dose omission in error [Unknown]
  - Gastroenteritis viral [Unknown]
  - Speech disorder [Unknown]
  - Infusion site nodule [Unknown]
  - Sinusitis [Unknown]
  - Muscle spasms [Unknown]
  - Anaemia [Unknown]
  - Injection site pain [Unknown]
  - Arthritis [Unknown]
  - Dry skin [Unknown]
  - Infusion site pain [Unknown]
  - Scar [Unknown]
  - Injection site mass [Unknown]

NARRATIVE: CASE EVENT DATE: 20240223
